FAERS Safety Report 18278562 (Version 3)
Quarter: 2020Q4

REPORT INFORMATION
  Report Type: Spontaneous
  Country: US (occurrence: US)
  Receive Date: 20200917
  Receipt Date: 20201215
  Transmission Date: 20210113
  Serious: Yes (Hospitalization)
  Sender: FDA-Public Use
  Company Number: US-GLAXOSMITHKLINE-US2020185361

PATIENT
  Age: 46 Year
  Sex: Female

DRUGS (17)
  1. ASPIRIN. [Suspect]
     Active Substance: ASPIRIN
     Dosage: 81 MG
     Route: 048
  2. DICLOFENAC SODIUM. [Suspect]
     Active Substance: DICLOFENAC SODIUM
     Indication: PRODUCT USED FOR UNKNOWN INDICATION
     Dosage: UNK
     Route: 048
  3. ASPIRIN. [Suspect]
     Active Substance: ASPIRIN
     Dosage: 20.25 MG
     Route: 048
  4. FLUTICASONE PROPIONATE+SALMETEROL XINAFOATE [Suspect]
     Active Substance: FLUTICASONE PROPIONATE\SALMETEROL XINAFOATE
     Indication: ASPIRIN-EXACERBATED RESPIRATORY DISEASE
     Dosage: 2 INHALATIONS TWICE DAILY
     Route: 055
  5. DUPILUMAB [Concomitant]
     Active Substance: DUPILUMAB
     Indication: ASPIRIN-EXACERBATED RESPIRATORY DISEASE
     Dosage: 600 MG
     Route: 058
  6. ASPIRIN. [Suspect]
     Active Substance: ASPIRIN
     Dosage: 40.5 MG
     Route: 048
  7. FLUTICASONE. [Suspect]
     Active Substance: FLUTICASONE
     Indication: ASPIRIN-EXACERBATED RESPIRATORY DISEASE
     Dosage: 50 MCG TWO SPRAYS TWICE DAILY
  8. IBUPROFEN. [Suspect]
     Active Substance: IBUPROFEN
     Indication: PRODUCT USED FOR UNKNOWN INDICATION
     Dosage: UNK
     Route: 065
  9. ASPIRIN. [Suspect]
     Active Substance: ASPIRIN
     Dosage: 650 MG
     Route: 048
  10. MONTELUKAST [Suspect]
     Active Substance: MONTELUKAST SODIUM
     Indication: ASPIRIN-EXACERBATED RESPIRATORY DISEASE
     Dosage: UNK
  11. BENRALIZUMAB. [Concomitant]
     Active Substance: BENRALIZUMAB
     Indication: ASPIRIN-EXACERBATED RESPIRATORY DISEASE
     Dosage: 30 MG, Z (EVERY 2 MONTHS AFTER 3 MONTHLY DOSES)
  12. DUPILUMAB [Concomitant]
     Active Substance: DUPILUMAB
     Dosage: 300 MG, Z (300 MG EVERY 2 WEEKS)
     Route: 058
  13. FEXOFENADINE [Suspect]
     Active Substance: FEXOFENADINE HYDROCHLORIDE
     Indication: ASPIRIN-EXACERBATED RESPIRATORY DISEASE
     Dosage: 180 MG, BID
  14. ASPIRIN. [Suspect]
     Active Substance: ASPIRIN
     Dosage: 162.5 MG
     Route: 048
  15. ASPIRIN. [Suspect]
     Active Substance: ASPIRIN
     Indication: PRODUCT USED FOR UNKNOWN INDICATION
     Dosage: UNK
     Route: 065
  16. ASPIRIN. [Suspect]
     Active Substance: ASPIRIN
     Dosage: 325 MG
     Route: 048
  17. BUDESONIDE NASAL SPRAY [Suspect]
     Active Substance: BUDESONIDE
     Indication: ASPIRIN-EXACERBATED RESPIRATORY DISEASE
     Dosage: 0.5 MG/2 ML TWICE DAILY
     Route: 050

REACTIONS (3)
  - Drug ineffective [Unknown]
  - Wheezing [Recovered/Resolved]
  - Asthma [Recovering/Resolving]
